FAERS Safety Report 4571574-5 (Version None)
Quarter: 2005Q1

REPORT INFORMATION
  Report Type: 
  Country: None (occurrence: None)
  Receive Date: 20050203
  Receipt Date: 20050203
  Transmission Date: 20050727
  Serious: Yes (Other)
  Sender: FDA-Public Use
  Company Number: None

PATIENT
  Sex: Male

DRUGS (3)
  1. CARBAMAZEPINE [Suspect]
     Indication: CONVULSION
     Dosage: 200MG 2 TID
  2. PHENYTOIN [Suspect]
     Indication: CONVULSION
     Dosage: 100 MG 4/DAY
  3. AMITRIPTYLINE [Concomitant]

REACTIONS (1)
  - CONVULSION [None]
